FAERS Safety Report 7781974-8 (Version None)
Quarter: 2011Q3

REPORT INFORMATION
  Report Type: 
  Country: None (occurrence: None)
  Receive Date: 20110927
  Receipt Date: 20110920
  Transmission Date: 20111222
  Serious: Yes (Other)
  Sender: FDA-Public Use
  Company Number: PHEH2011US04811

PATIENT
  Age: 19 Year
  Sex: Female
  Weight: 54 kg

DRUGS (2)
  1. TOBI [Suspect]
     Indication: CYSTIC FIBROSIS
     Dosage: 300 MG, TWICE A DAY FOR 28 DAYS REPEAT EVERY OTHER MONTH
     Dates: start: 20110525
  2. PULMOZYME [Concomitant]

REACTIONS (1)
  - INFECTION [None]
